FAERS Safety Report 18124317 (Version 6)
Quarter: 2021Q2

REPORT INFORMATION
  Report Type: Spontaneous
  Country: US (occurrence: US)
  Receive Date: 20200807
  Receipt Date: 20210506
  Transmission Date: 20210717
  Serious: Yes (Hospitalization)
  Sender: FDA-Public Use
  Company Number: US-BIOGEN-2020BI00906507

PATIENT
  Sex: Female

DRUGS (1)
  1. TYSABRI [Suspect]
     Active Substance: NATALIZUMAB
     Indication: MULTIPLE SCLEROSIS
     Dosage: INFUSED OVER 1 HOUR
     Route: 065
     Dates: start: 20120125, end: 202003

REACTIONS (6)
  - Pneumonia [Recovered/Resolved with Sequelae]
  - Unresponsive to stimuli [Unknown]
  - Lung disorder [Unknown]
  - Respiratory arrest [Unknown]
  - Cough [Recovered/Resolved with Sequelae]
  - Aspiration [Recovered/Resolved with Sequelae]

NARRATIVE: CASE EVENT DATE: 2020
